FAERS Safety Report 5956276-2 (Version None)
Quarter: 2008Q4

REPORT INFORMATION
  Report Type: 
  Country: None (occurrence: None)
  Receive Date: 20081118
  Receipt Date: 20081031
  Transmission Date: 20090506
  Serious: No
  Sender: FDA-Public Use
  Company Number: US-BAYER-200837445NA

PATIENT
  Age: 64 Year
  Sex: Male
  Weight: 93 kg

DRUGS (1)
  1. MAGNEVIST [Suspect]
     Indication: NUCLEAR MAGNETIC RESONANCE IMAGING
     Dosage: TOTAL DAILY DOSE: 20 ML
     Dates: start: 20081030, end: 20081030

REACTIONS (2)
  - NAUSEA [None]
  - VOMITING [None]
